FAERS Safety Report 8121630-X (Version None)
Quarter: 2012Q1

REPORT INFORMATION
  Report Type: 
  Country: None (occurrence: None)
  Receive Date: 20120208
  Receipt Date: 20120208
  Transmission Date: 20120608
  Serious: Yes (Other)
  Sender: FDA-Public Use
  Company Number: None

PATIENT
  Sex: Female

DRUGS (1)
  1. EFFEXOR XR [Suspect]
     Indication: ANXIETY
     Dosage: 35MG
     Route: 048
     Dates: start: 20111226, end: 20111227

REACTIONS (2)
  - SLEEP DISORDER [None]
  - MICTURITION URGENCY [None]
